FAERS Safety Report 5482704-5 (Version None)
Quarter: 2007Q4

REPORT INFORMATION
  Report Type: 
  Country: None (occurrence: None)
  Receive Date: 20071011
  Receipt Date: 20070928
  Transmission Date: 20080405
  Serious: Yes (Other)
  Sender: FDA-Public Use
  Company Number: US-PFIZER INC-2007081337

PATIENT
  Sex: Male
  Weight: 97.272 kg

DRUGS (5)
  1. LYRICA [Suspect]
     Indication: TRIGEMINAL NEURALGIA
  2. CLINDAC [Concomitant]
  3. POTASSIUM CHLORIDE [Concomitant]
  4. ZOCOR [Concomitant]
  5. LASIX [Concomitant]

REACTIONS (6)
  - CLUMSINESS [None]
  - DIZZINESS [None]
  - DYSPNOEA [None]
  - GRIP STRENGTH DECREASED [None]
  - SLEEP DISORDER [None]
  - SOMNOLENCE [None]
